FAERS Safety Report 10203471 (Version 4)
Quarter: 2015Q2

REPORT INFORMATION
  Report Type: Report from Study
  Country: JP (occurrence: JP)
  Receive Date: 20140529
  Receipt Date: 20150429
  Transmission Date: 20150821
  Serious: Yes (Other)
  Sender: FDA-Public Use
  Company Number: JP-AMGEN-JPNCT2014028703

PATIENT
  Sex: Female
  Weight: 37 kg

DRUGS (7)
  1. LOXONIN [Concomitant]
     Active Substance: LOXOPROFEN SODIUM
     Dosage: 180 MG, QD
     Route: 048
     Dates: start: 20131224
  2. CALCIUM LACTATE [Concomitant]
     Active Substance: CALCIUM LACTATE
     Dosage: 1 G, QD
     Route: 048
     Dates: start: 20130325
  3. PACLITAXEL. [Concomitant]
     Active Substance: PACLITAXEL
     Dosage: 90 MG, UNK
     Route: 065
     Dates: start: 20130816
  4. AVASTIN [Concomitant]
     Active Substance: BEVACIZUMAB
     Dosage: 370 MG, Q2WK
     Route: 042
     Dates: start: 20130816
  5. DENOSUMAB [Suspect]
     Active Substance: DENOSUMAB
     Indication: METASTASES TO BONE
     Dosage: 120 MG, UNK
     Route: 058
     Dates: start: 20130405
  6. ALFAROL [Concomitant]
     Active Substance: ALFACALCIDOL
     Dosage: 1 MUG, QD
     Route: 048
     Dates: start: 20130325
  7. PROTECADIN [Concomitant]
     Active Substance: LAFUTIDINE
     Dosage: 20 MG, QD
     Route: 048
     Dates: start: 20130816

REACTIONS (3)
  - Neuropathy peripheral [Recovered/Resolved]
  - Hypertension [Recovering/Resolving]
  - Osteonecrosis of jaw [Not Recovered/Not Resolved]

NARRATIVE: CASE EVENT DATE: 20131011
